FAERS Safety Report 5717871-9 (Version None)
Quarter: 2008Q2

REPORT INFORMATION
  Report Type: 
  Country: None (occurrence: None)
  Receive Date: 20080425
  Receipt Date: 20071126
  Transmission Date: 20081010
  Serious: No
  Sender: FDA-Public Use
  Company Number: US-ABBOTT-07P-163-0426877-00

PATIENT
  Sex: Female

DRUGS (2)
  1. ERYTHROMYCIN [Suspect]
     Indication: PROPHYLAXIS
     Route: 048
  2. ERYTHROMYCIN [Suspect]
     Indication: DENTAL TREATMENT

REACTIONS (1)
  - STOMACH DISCOMFORT [None]
